FAERS Safety Report 14479050 (Version 1)
Quarter: 2018Q1

REPORT INFORMATION
  Report Type: Report from Study
  Country: None (occurrence: CO)
  Receive Date: 20180202
  Receipt Date: 20180202
  Transmission Date: 20180509
  Serious: Yes (Other)
  Sender: FDA-Public Use
  Company Number: CO-ABBVIE-18K-036-2242700-00

PATIENT
  Age: 68 Year
  Sex: Female

DRUGS (1)
  1. HUMIRA [Suspect]
     Active Substance: ADALIMUMAB
     Indication: PSORIASIS
     Route: 058
     Dates: start: 20110214, end: 20180115

REACTIONS (3)
  - Tooth socket haemorrhage [Recovering/Resolving]
  - Wisdom teeth removal [Recovering/Resolving]
  - Post procedural haemorrhage [Unknown]

NARRATIVE: CASE EVENT DATE: 201801
